FAERS Safety Report 9100644 (Version 2)
Quarter: 2013Q1

REPORT INFORMATION
  Report Type: Spontaneous
  Country: US (occurrence: US)
  Receive Date: 20130214
  Receipt Date: 20130305
  Transmission Date: 20140127
  Serious: Yes (Hospitalization, Other)
  Sender: FDA-Public Use
  Company Number: PHEH2013US003385

PATIENT
  Age: 61 Year
  Sex: Female
  Weight: 45 kg

DRUGS (6)
  1. GILENYA [Suspect]
     Indication: MULTIPLE SCLEROSIS
     Dosage: 0.5 MG, QD
     Route: 048
     Dates: start: 201111, end: 201301
  2. AMPYRA [Concomitant]
  3. SANCTURA [Concomitant]
  4. XANAX [Concomitant]
  5. LIPITOR [Concomitant]
  6. SINGULAIR [Concomitant]

REACTIONS (9)
  - Oesophageal candidiasis [Recovering/Resolving]
  - Oesophagitis ulcerative [Recovering/Resolving]
  - Dysphagia [Recovering/Resolving]
  - Odynophagia [Recovering/Resolving]
  - Gastritis [Recovering/Resolving]
  - Dyspnoea [Unknown]
  - Weight decreased [Recovering/Resolving]
  - Oral candidiasis [Recovering/Resolving]
  - Lymphocyte count decreased [Unknown]
